FAERS Safety Report 18072356 (Version 1)
Quarter: 2020Q3

REPORT INFORMATION
  Report Type: Spontaneous
  Country: US (occurrence: US)
  Receive Date: 20200726
  Receipt Date: 20200726
  Transmission Date: 20201103
  Serious: No
  Sender: FDA-Public Use
  Company Number: None

PATIENT
  Age: 33 Year
  Sex: Female
  Weight: 59.4 kg

DRUGS (9)
  1. EMGALITY [Suspect]
     Active Substance: GALCANEZUMAB-GNLM
     Indication: MIGRAINE
     Dosage: ?          QUANTITY:1 INJECTION(S);OTHER FREQUENCY:MONTHLY;?
     Route: 058
  2. LUNESTA [Concomitant]
     Active Substance: ESZOPICLONE
  3. AMATRIPTALINE [Concomitant]
  4. TYLENOL [Concomitant]
     Active Substance: ACETAMINOPHEN
  5. GABAPENTIN. [Concomitant]
     Active Substance: GABAPENTIN
  6. EMGALITY [Concomitant]
     Active Substance: GALCANEZUMAB-GNLM
  7. IBUPROFEN. [Concomitant]
     Active Substance: IBUPROFEN
  8. METHIMAZOLE. [Concomitant]
     Active Substance: METHIMAZOLE
  9. ZYRTEC [Concomitant]
     Active Substance: CETIRIZINE HYDROCHLORIDE

REACTIONS (3)
  - Injection site pruritus [None]
  - Injection site mass [None]
  - Injection site erythema [None]

NARRATIVE: CASE EVENT DATE: 20200725
